FAERS Safety Report 8443539-4 (Version None)
Quarter: 2012Q2

REPORT INFORMATION
  Report Type: 
  Country: None (occurrence: None)
  Receive Date: 20120618
  Receipt Date: 20120612
  Transmission Date: 20120825
  Serious: No
  Sender: FDA-Public Use
  Company Number: US-PFIZER INC-2012141963

PATIENT
  Sex: Female
  Weight: 92.517 kg

DRUGS (3)
  1. ATENOLOL [Concomitant]
     Dosage: UNK
  2. CHANTIX [Suspect]
     Indication: SMOKING CESSATION THERAPY
     Dosage: 1 MG, UNK
  3. CHANTIX [Suspect]
     Dosage: 0.5 MG, 1X/DAY

REACTIONS (2)
  - FEELING ABNORMAL [None]
  - DRUG PRESCRIBING ERROR [None]
